FAERS Safety Report 4463836-7 (Version None)
Quarter: 2004Q3

REPORT INFORMATION
  Report Type: 
  Country: None (occurrence: None)
  Receive Date: 20040929
  Receipt Date: 20040916
  Transmission Date: 20050211
  Serious: Yes (Death, Other)
  Sender: FDA-Public Use
  Company Number: 033-0981-M0000455

PATIENT
  Age: 53 Year
  Sex: Male

DRUGS (7)
  1. ATORVASTATIN CALCIUM [Suspect]
     Indication: ILL-DEFINED DISORDER
     Dosage: 10 MG (10 MG, 1 IN 1 D), ORAL
     Route: 048
     Dates: start: 20000331, end: 20000911
  2. FOSINOPRIL [Suspect]
     Indication: ILL-DEFINED DISORDER
     Dates: start: 20000519, end: 20000911
  3. CODEINE PHOSPHATE AND ACETAMINOPHEN [Suspect]
     Indication: ILL-DEFINED DISORDER
     Dates: end: 20000911
  4. ACETYLSALICYLIC ACID SRT [Concomitant]
  5. FUROSEMIDE [Concomitant]
  6. ACEBUTOLOL HCL [Concomitant]
  7. SPIRONOLACTONE [Concomitant]

REACTIONS (5)
  - APNOEA [None]
  - ARRHYTHMIA [None]
  - HEPATITIS CHOLESTATIC [None]
  - INFLUENZA [None]
  - MYOCARDIAL INFARCTION [None]
